FAERS Safety Report 15470719 (Version 2)
Quarter: 2018Q4

REPORT INFORMATION
  Report Type: Report from Study
  Country: CA (occurrence: CA)
  Receive Date: 20181005
  Receipt Date: 20181011
  Transmission Date: 20190205
  Serious: Yes (Life-Threatening)
  Sender: FDA-Public Use
  Company Number: CA-009507513-1707CAN008507

PATIENT
  Age: 9 Year
  Sex: Male

DRUGS (7)
  1. VENTOLIN [Concomitant]
     Active Substance: ALBUTEROL SULFATE
     Dosage: UNK UNK, PRN
  2. SINGULAIR [Suspect]
     Active Substance: MONTELUKAST SODIUM
     Indication: RHINITIS ALLERGIC
  3. RHINOCORT [Concomitant]
     Active Substance: BUDESONIDE
     Dosage: 2 SPRAYS IN EACH NOSTRIL DAILY (QD)
     Route: 045
  4. SINGULAIR [Suspect]
     Active Substance: MONTELUKAST SODIUM
     Indication: ASTHMA
     Dosage: 1 TABLET, DAILY (OD)
     Route: 048
     Dates: start: 201401
  5. VITAMIN D [Concomitant]
     Active Substance: CHOLECALCIFEROL
     Dosage: 1000 IU, DAILY (QD)
  6. ASMANEX [Suspect]
     Active Substance: MOMETASONE FUROATE
     Dosage: 2 PUFFS, DAILY
     Route: 055
     Dates: start: 201710
  7. FLOVENT [Suspect]
     Active Substance: FLUTICASONE PROPIONATE
     Dosage: UNK

REACTIONS (8)
  - Cyst [Unknown]
  - Tooth disorder [Unknown]
  - Allergy test positive [Unknown]
  - Cough [Unknown]
  - Allergy to animal [Unknown]
  - Nasal oedema [Unknown]
  - Treatment noncompliance [Unknown]
  - Product dose omission [Unknown]

NARRATIVE: CASE EVENT DATE: 201612
